FAERS Safety Report 6267904-9 (Version None)
Quarter: 2009Q3

REPORT INFORMATION
  Report Type: 
  Country: None (occurrence: None)
  Receive Date: 20090714
  Receipt Date: 20090710
  Transmission Date: 20100115
  Serious: Yes (Other)
  Sender: FDA-Public Use
  Company Number: US-AMGEN-US355263

PATIENT
  Sex: Female
  Weight: 53 kg

DRUGS (3)
  1. NPLATE [Suspect]
     Indication: THROMBOCYTOPENIA
     Dates: start: 20090619
  2. CYTOXAN [Concomitant]
     Route: 065
  3. RITUXAN [Concomitant]

REACTIONS (7)
  - ERYTHEMA [None]
  - PLATELET COUNT DECREASED [None]
  - RASH [None]
  - RASH MACULAR [None]
  - SKIN ATROPHY [None]
  - SKIN EXFOLIATION [None]
  - SKIN HAEMORRHAGE [None]
